FAERS Safety Report 4374255-6 (Version None)
Quarter: 2004Q2

REPORT INFORMATION
  Report Type: 
  Country: None (occurrence: None)
  Receive Date: 20040602
  Receipt Date: 20040224
  Transmission Date: 20050107
  Serious: No
  Sender: FDA-Public Use
  Company Number: 200412050BWH

PATIENT
  Age: 55 Year
  Sex: Male
  Weight: 90.2658 kg

DRUGS (10)
  1. LEVITRA [Suspect]
     Indication: ERECTILE DYSFUNCTION
     Dosage: 5 MG, TOTAL DAILY, ORAL
     Route: 048
  2. AVANDIA [Concomitant]
  3. KLOR-CON [Concomitant]
  4. ZOCOR [Concomitant]
  5. LASIX [Concomitant]
  6. ACCUPRIL [Concomitant]
  7. PLAVIX [Concomitant]
  8. NEXIUM/USA [Concomitant]
  9. ASPIRIN [Concomitant]
  10. BENADRYL COMPLEX [Concomitant]

REACTIONS (2)
  - NEUROPATHY PERIPHERAL [None]
  - SKIN ULCER [None]
